FAERS Safety Report 8904120 (Version 1)
Quarter: 2012Q4

REPORT INFORMATION
  Report Type: 
  Country: CA (occurrence: CA)
  Receive Date: 20121112
  Receipt Date: 20121112
  Transmission Date: 20130627
  Serious: Yes (Death)
  Sender: FDA-Public Use
  Company Number: CA-ASTRAZENECA-2012SE84862

PATIENT
  Age: 50 Year
  Sex: Female

DRUGS (10)
  1. DIPRIVAN [Suspect]
     Route: 042
  2. CLOXACILLIN [Concomitant]
     Route: 042
  3. ENOXAPARIN [Concomitant]
     Route: 058
  4. LEFLUNOMIDE [Concomitant]
     Route: 048
  5. LEVETIRACETAM [Concomitant]
     Route: 048
  6. METOCLOPRAMIDE [Concomitant]
     Route: 042
  7. PHENOBARBITAL [Concomitant]
     Route: 042
  8. PHENYTOIN [Concomitant]
     Route: 042
  9. PREDNISONE [Concomitant]
  10. TOPIRAMATE [Concomitant]
     Route: 048

REACTIONS (3)
  - Circulatory collapse [Fatal]
  - Hyperlipidaemia [Fatal]
  - Lactic acidosis [Fatal]
